FAERS Safety Report 25344154 (Version 5)
Quarter: 2025Q3

REPORT INFORMATION
  Report Type: Spontaneous
  Country: US (occurrence: US)
  Receive Date: 20250521
  Receipt Date: 20250819
  Transmission Date: 20251021
  Serious: Yes (Hospitalization, Other)
  Sender: SANOFI AVENTIS
  Company Number: US-SANOFI-02527061

PATIENT
  Age: 72 Year
  Sex: Male
  Weight: 68.6 kg

DRUGS (46)
  1. THYMOGLOBULIN [Suspect]
     Active Substance: LAPINE T-LYMPHOCYTE IMMUNE GLOBULIN
     Indication: Renal transplant
     Route: 042
     Dates: start: 20250515, end: 20250515
  2. THYMOGLOBULIN [Suspect]
     Active Substance: LAPINE T-LYMPHOCYTE IMMUNE GLOBULIN
     Route: 042
     Dates: start: 20250516, end: 20250516
  3. MYCOPHENOLIC ACID [Concomitant]
     Active Substance: MYCOPHENOLIC ACID
  4. INSULIN LISPRO [Concomitant]
     Active Substance: INSULIN LISPRO
     Indication: Diabetes mellitus
     Dosage: 2-12 IU TID
  5. INSULIN LISPRO [Concomitant]
     Active Substance: INSULIN LISPRO
     Dosage: 1-6 IU HS
  6. HEPARIN [Concomitant]
     Active Substance: HEPARIN SODIUM
     Dates: start: 20250516
  7. MYFORTIC [Concomitant]
     Active Substance: MYCOPHENOLATE SODIUM
     Indication: Premedication
     Dosage: 1 DF, BID
     Route: 048
     Dates: start: 20250516, end: 20250516
  8. FLUCONAZOLE [Concomitant]
     Active Substance: FLUCONAZOLE
     Indication: Renal transplant
     Dosage: 1 DF, QD
     Route: 048
  9. VALGANCICLOVIR [Concomitant]
     Active Substance: VALGANCICLOVIR
     Indication: Cytomegalovirus infection
  10. VALGANCICLOVIR [Concomitant]
     Active Substance: VALGANCICLOVIR
     Indication: Renal transplant
  11. CARVEDILOL [Concomitant]
     Active Substance: CARVEDILOL
     Indication: Hypertension
     Dosage: 6.25 MG, BID
  12. CARVEDILOL [Concomitant]
     Active Substance: CARVEDILOL
     Indication: Renal transplant
  13. CARVEDILOL [Concomitant]
     Active Substance: CARVEDILOL
     Indication: End stage renal disease
  14. HYDRALAZINE [Concomitant]
     Active Substance: HYDRALAZINE HYDROCHLORIDE
     Indication: Hypertension
  15. HYDRALAZINE [Concomitant]
     Active Substance: HYDRALAZINE HYDROCHLORIDE
     Dosage: 50 MG, Q6H
  16. HYDRALAZINE [Concomitant]
     Active Substance: HYDRALAZINE HYDROCHLORIDE
     Dosage: 10 MG, Q6H
  17. HYDRALAZINE [Concomitant]
     Active Substance: HYDRALAZINE HYDROCHLORIDE
  18. ACETAMINOPHEN [Concomitant]
     Active Substance: ACETAMINOPHEN
     Indication: Renal transplant
     Dosage: 500 MG, Q6H
     Route: 048
  19. ATORVASTATIN [Concomitant]
     Active Substance: ATORVASTATIN
     Indication: Hypertension
     Dosage: 10.000MG QD
  20. ATORVASTATIN [Concomitant]
     Active Substance: ATORVASTATIN
     Indication: End stage renal disease
  21. METHYLPREDNISOLONE [Concomitant]
     Active Substance: METHYLPREDNISOLONE
     Indication: Premedication
     Route: 042
     Dates: start: 20250516, end: 20250516
  22. CEFAZOLIN [Concomitant]
     Active Substance: CEFAZOLIN
     Indication: Bacterial infection
     Route: 042
     Dates: start: 20250516, end: 20250516
  23. CEFAZOLIN [Concomitant]
     Active Substance: CEFAZOLIN
     Route: 042
     Dates: start: 20250516, end: 20250516
  24. BENADRYL [Concomitant]
     Active Substance: DIPHENHYDRAMINE HYDROCHLORIDE
     Indication: Premedication
     Route: 042
     Dates: start: 20250516, end: 20250516
  25. TYLENOL [Concomitant]
     Active Substance: ACETAMINOPHEN
     Indication: Premedication
     Route: 048
     Dates: start: 20250516, end: 20250516
  26. AMLODIPINE [Concomitant]
     Active Substance: AMLODIPINE BESYLATE
     Indication: Hypertension
  27. CYCLOSPORINE [Concomitant]
     Active Substance: CYCLOSPORINE
     Indication: Renal transplant
     Dosage: 2 DF, BID
     Route: 048
  28. DOCUSATE SODIUM [Concomitant]
     Active Substance: DOCUSATE SODIUM
     Indication: Constipation
     Dosage: 1 DF, BID
     Route: 048
  29. DELTASONE [Concomitant]
     Active Substance: PREDNISONE
     Dosage: 4 DF, QD
     Route: 048
  30. SENOKOT [Concomitant]
     Active Substance: SENNOSIDES
     Indication: Renal transplant
     Route: 048
  31. SENOKOT [Concomitant]
     Active Substance: SENNOSIDES
     Indication: Constipation
  32. BACTRIM [Concomitant]
     Active Substance: SULFAMETHOXAZOLE\TRIMETHOPRIM
     Indication: Renal transplant
     Dosage: 1 DF, TIW
     Route: 048
  33. VALCYTE [Concomitant]
     Active Substance: VALGANCICLOVIR HYDROCHLORIDE
     Indication: Renal transplant
     Dosage: 1 DF, TIW
     Route: 048
  34. LIPITOR [Concomitant]
     Active Substance: ATORVASTATIN CALCIUM
     Indication: End stage renal disease
     Dosage: 1 DF, QD
     Route: 048
  35. LIPITOR [Concomitant]
     Active Substance: ATORVASTATIN CALCIUM
     Indication: Renal transplant
  36. NORVASC [Concomitant]
     Active Substance: AMLODIPINE BESYLATE
     Indication: Hypertension
     Dosage: 1 DF, QD
     Route: 048
  37. LANTUS SOLOSTAR [Concomitant]
     Active Substance: INSULIN GLARGINE
     Indication: Diabetes mellitus
     Dosage: 5 IU, BID
  38. FAMOTIDINE [Concomitant]
     Active Substance: FAMOTIDINE
     Indication: Renal transplant
     Dosage: 1 DF, QD (EVERY EVENING)
     Route: 048
  39. LASIX [Concomitant]
     Active Substance: FUROSEMIDE
  40. RENVELA [Concomitant]
     Active Substance: SEVELAMER CARBONATE
  41. DIOVAN [Concomitant]
     Active Substance: VALSARTAN
  42. SODIUM BICARBONATE [Concomitant]
     Active Substance: SODIUM BICARBONATE
  43. CYCLOSPORINE [Concomitant]
     Active Substance: CYCLOSPORINE
     Indication: Renal transplant
     Dosage: 1 DF, QD
     Route: 048
  44. GLYCOLAX [Concomitant]
     Active Substance: POLYETHYLENE GLYCOL 3350
     Indication: Renal transplant
     Dosage: TAKE 17 G BY MOUTH DAILY. MIX WITH 4 TO 8 OUNCES OF FLUID (WATER, JUICE, SODA, COFFEE, OR TEA) PRIOR
     Route: 048
  45. CLONIDINE [Concomitant]
     Active Substance: CLONIDINE
     Indication: Hypertension
     Dosage: 0.1 MG, Q6H
  46. CLONIDINE [Concomitant]
     Active Substance: CLONIDINE
     Indication: Renal transplant

REACTIONS (11)
  - Thrombotic microangiopathy [Recovered/Resolved]
  - Thrombocytopenia [Recovered/Resolved]
  - ADAMTS13 activity decreased [Recovered/Resolved]
  - Blood lactate dehydrogenase increased [Unknown]
  - Haptoglobin decreased [Unknown]
  - Immunosuppression [Unknown]
  - Haemolysis [Unknown]
  - Atrial fibrillation [Recovered/Resolved]
  - Complications of transplanted kidney [Unknown]
  - Lymphocele [Unknown]
  - Off label use [Unknown]

NARRATIVE: CASE EVENT DATE: 20250501
